FAERS Safety Report 10032537 (Version 1)
Quarter: 2014Q1

REPORT INFORMATION
  Report Type: Report from Study
  Country: US (occurrence: US)
  Receive Date: 20140324
  Receipt Date: 20140324
  Transmission Date: 20141002
  Serious: Yes (Hospitalization)
  Sender: FDA-Public Use
  Company Number: US-CELGENEUS-163-21880-14032779

PATIENT
  Sex: Male
  Weight: 72.64 kg

DRUGS (4)
  1. REVLIMID [Suspect]
     Indication: HODGKIN^S DISEASE
     Route: 048
     Dates: start: 20120517
  2. REVLIMID [Suspect]
     Dosage: 15 MILLIGRAM
     Route: 048
     Dates: start: 20140205, end: 20140225
  3. PANOBINOSTAT [Suspect]
     Indication: HODGKIN^S DISEASE
     Route: 048
     Dates: start: 20120517
  4. PANOBINOSTAT [Suspect]
     Dosage: 10 MILLIGRAM
     Route: 048
     Dates: start: 20140205, end: 20140225

REACTIONS (1)
  - Aortic stenosis [Unknown]
